FAERS Safety Report 6239518-8 (Version None)
Quarter: 2009Q2

REPORT INFORMATION
  Report Type: 
  Country: None (occurrence: None)
  Receive Date: 20090618
  Receipt Date: 20090618
  Transmission Date: 20091009
  Serious: Yes (Other)
  Sender: FDA-Public Use
  Company Number: None

PATIENT
  Age: 48 Year
  Sex: Female
  Weight: 81.6475 kg

DRUGS (2)
  1. ZICAM INTENSE SINUS RELIEF ZICAM, LLC [Suspect]
     Indication: SINUS CONGESTION
     Dosage: 2 SPRAYS EACH NOSTRIL DAILY
     Dates: start: 20070801, end: 20090204
  2. ZICAM INTENSE SINUS RELIEF ZICAM, LLC [Suspect]

REACTIONS (2)
  - AGEUSIA [None]
  - ANOSMIA [None]
